FAERS Safety Report 10717373 (Version 1)
Quarter: 2015Q1

REPORT INFORMATION
  Report Type: Spontaneous
  Country: US (occurrence: US)
  Receive Date: 20150116
  Receipt Date: 20150116
  Transmission Date: 20150721
  Serious: Yes (Hospitalization)
  Sender: FDA-Public Use
  Company Number: US-ELI_LILLY_AND_COMPANY-US201501002091

PATIENT
  Age: 58 Year
  Sex: Female

DRUGS (2)
  1. HUMALOG [Suspect]
     Active Substance: INSULIN LISPRO
     Indication: TYPE 2 DIABETES MELLITUS
     Dosage: 12 U, WITH MEALS
     Route: 065
     Dates: start: 2014
  2. LANTUS [Concomitant]
     Active Substance: INSULIN GLARGINE

REACTIONS (2)
  - Hyperglycaemia [Unknown]
  - Underdose [Unknown]

NARRATIVE: CASE EVENT DATE: 20141215
